FAERS Safety Report 9612492 (Version 3)
Quarter: 2013Q4

REPORT INFORMATION
  Report Type: Spontaneous
  Country: JP (occurrence: JP)
  Receive Date: 20131010
  Receipt Date: 20131015
  Transmission Date: 20140711
  Serious: Yes (Other)
  Sender: FDA-Public Use
  Company Number: JP-BAYER-2013-120211

PATIENT
  Age: 76 Year
  Sex: Female

DRUGS (1)
  1. BAYASPIRIN [Suspect]
     Dosage: 100 MG
     Route: 048

REACTIONS (4)
  - Haemorrhage subcutaneous [Recovered/Resolved]
  - Pharyngeal haematoma [Recovered/Resolved]
  - Parathyroid tumour benign [None]
  - Hyperparathyroidism primary [None]
